FAERS Safety Report 23519399 (Version 3)
Quarter: 2024Q3

REPORT INFORMATION
  Report Type: Spontaneous
  Country: US (occurrence: US)
  Receive Date: 20240213
  Receipt Date: 20240718
  Transmission Date: 20241017
  Serious: No
  Sender: SANOFI AVENTIS
  Company Number: US-SA-SAC20240206001409

PATIENT
  Age: 68 Year
  Sex: Female
  Weight: 81.19 kg

DRUGS (1)
  1. REZUROCK [Suspect]
     Active Substance: BELUMOSUDIL
     Indication: Graft versus host disease
     Dosage: 200 MG, QD
     Route: 048

REACTIONS (4)
  - Limb injury [Unknown]
  - Swelling [Unknown]
  - Wound haemorrhage [Unknown]
  - Blood immunoglobulin G decreased [Unknown]
